FAERS Safety Report 7971436-7 (Version None)
Quarter: 2011Q4

REPORT INFORMATION
  Report Type: 
  Country: None (occurrence: None)
  Receive Date: 20111209
  Receipt Date: 20111209
  Transmission Date: 20120403
  Serious: Yes (Hospitalization)
  Sender: FDA-Public Use
  Company Number: None

PATIENT
  Sex: Female
  Weight: 80.68 kg

DRUGS (1)
  1. TAXOL [Suspect]
     Dosage: 1740 MG

REACTIONS (3)
  - PYREXIA [None]
  - PANCYTOPENIA [None]
  - ACUTE PROMYELOCYTIC LEUKAEMIA [None]
